FAERS Safety Report 4685570-0 (Version None)
Quarter: 2005Q2

REPORT INFORMATION
  Report Type: 
  Country: None (occurrence: None)
  Receive Date: 20050517
  Receipt Date: 20050303
  Transmission Date: 20051028
  Serious: Yes (Other)
  Sender: FDA-Public Use
  Company Number: WAES 0503USA00486

PATIENT
  Age: 35 Year
  Sex: Male

DRUGS (4)
  1. CRIXIVAN [Suspect]
     Dosage: 800 MG/BID/PO
     Route: 048
     Dates: end: 20050211
  2. COMBIVIR [Concomitant]
  3. LIPITOR [Concomitant]
  4. RITONAVIR [Concomitant]

REACTIONS (2)
  - BLOOD CREATININE INCREASED [None]
  - NEPHROLITHIASIS [None]
